FAERS Safety Report 5423456-4 (Version None)
Quarter: 2007Q3

REPORT INFORMATION
  Report Type: 
  Country: None (occurrence: None)
  Receive Date: 20070727
  Receipt Date: 20070607
  Transmission Date: 20080115
  Serious: No
  Sender: FDA-Public Use
  Company Number: 264307

PATIENT
  Age: 52 Year
  Sex: Female

DRUGS (3)
  1. LEVEMIR [Suspect]
     Indication: TYPE 1 DIABETES MELLITUS
     Dosage: 15 IOU, QD, SUBCUTANEOUS
     Route: 058
     Dates: start: 20061201
  2. LEVEMIR [Suspect]
     Indication: TYPE 1 DIABETES MELLITUS
     Dosage: 15 IOU, QD, SUBCUTANEOUS
     Route: 058
     Dates: start: 20070501
  3. NOVOLOG [Suspect]
     Indication: TYPE 1 DIABETES MELLITUS
     Dosage: SLIDING SCALE, SUBCUTANEOUS
     Route: 058
     Dates: start: 20061201

REACTIONS (4)
  - ARTHRITIS [None]
  - BLOOD GLUCOSE FLUCTUATION [None]
  - FLUID RETENTION [None]
  - WEIGHT INCREASED [None]
